FAERS Safety Report 5038394-9 (Version None)
Quarter: 2006Q2

REPORT INFORMATION
  Report Type: 
  Country: None (occurrence: None)
  Receive Date: 20060627
  Receipt Date: 20060627
  Transmission Date: 20061013
  Serious: Yes (Hospitalization)
  Sender: FDA-Public Use
  Company Number: None

PATIENT
  Sex: Female
  Weight: 6.2 kg

DRUGS (2)
  1. METHOTREXATE [Suspect]
     Indication: ACUTE LYMPHOCYTIC LEUKAEMIA
     Dosage: 200 MG /M2 64 MG ONCE IV
     Route: 042
     Dates: start: 20060508
  2. METHOTREXATE [Suspect]
     Dosage: 3800 MG/M2 1216 MG ONCE IV
     Route: 042
     Dates: start: 20060508

REACTIONS (8)
  - EXFOLIATIVE RASH [None]
  - FLUSHING [None]
  - MUCOSAL INFLAMMATION [None]
  - ORAL INTAKE REDUCED [None]
  - PAIN [None]
  - RASH ERYTHEMATOUS [None]
  - RASH MACULO-PAPULAR [None]
  - RASH PRURITIC [None]
